FAERS Safety Report 9386839 (Version 2)
Quarter: 2013Q3

REPORT INFORMATION
  Report Type: Spontaneous
  Country: US (occurrence: US)
  Receive Date: 20130708
  Receipt Date: 20130816
  Transmission Date: 20140515
  Serious: No
  Sender: FDA-Public Use
  Company Number: US-009507513-1307USA002618

PATIENT
  Age: 49 Year
  Sex: Female
  Weight: 68.27 kg

DRUGS (11)
  1. VICTRELIS [Suspect]
     Dosage: 4 CAPSULES , 4 TIMES A DAY
     Route: 048
     Dates: start: 20130329
  2. PEGASYS [Suspect]
     Dosage: 180 MICROGRAM/0.5ML, QW
     Route: 058
     Dates: start: 20130301
  3. RIBAPAK [Suspect]
     Dosage: 400MG BID
     Dates: start: 20130301
  4. TESTOSTERONE [Concomitant]
     Dosage: 100 MG/ML
  5. ESTRADIOL [Concomitant]
     Dosage: 0.025 MG, UNK
     Route: 048
  6. BIOTIN [Concomitant]
     Dosage: 1000 MICROGRAM, QD
  7. CALCIUM (UNSPECIFIED) (+) VITAMIN D (UNSPECIFIED) [Concomitant]
     Dosage: 600-200MG QD
  8. GLUCOSAMINE [Concomitant]
     Dosage: 2000 MG, QD
  9. VITAMIN E [Concomitant]
     Dosage: 400 UNITS QD
  10. ASCORBIC ACID [Concomitant]
     Dosage: 500 MG, QD
  11. VITAMINS (UNSPECIFIED) [Concomitant]

REACTIONS (8)
  - Emotional disorder [Unknown]
  - Personality change [Unknown]
  - Anger [Unknown]
  - White blood cell count decreased [Unknown]
  - Depression [Unknown]
  - Dry mouth [Unknown]
  - Fatigue [Unknown]
  - Anaemia [Unknown]
